FAERS Safety Report 19977827 (Version 10)
Quarter: 2022Q2

REPORT INFORMATION
  Report Type: Report from Study
  Country: IE (occurrence: IE)
  Receive Date: 20211020
  Receipt Date: 20220627
  Transmission Date: 20220720
  Serious: Yes (Hospitalization, Disabling, Other)
  Sender: FDA-Public Use
  Company Number: IE-SA-SAC20210304000326

PATIENT
  Age: 57 Year
  Sex: Female

DRUGS (33)
  1. BACLOFEN [Suspect]
     Active Substance: BACLOFEN
     Indication: Pain in extremity
     Dosage: UNK
     Route: 065
     Dates: start: 20210414
  2. ALEMTUZUMAB [Suspect]
     Active Substance: ALEMTUZUMAB
     Indication: Multiple sclerosis
     Dosage: UNK
     Route: 065
     Dates: start: 20200527
  3. TIZANIDINE [Concomitant]
     Active Substance: TIZANIDINE
     Dosage: 4 MILLIGRAM
     Route: 065
  4. TIZANIDINE [Concomitant]
     Active Substance: TIZANIDINE
     Dosage: 4 MILLIGRAM
     Route: 065
  5. PRAMIPEXOLE [Concomitant]
     Active Substance: PRAMIPEXOLE
     Dosage: 180 MILLIGRAM
     Route: 065
  6. PRAMIPEXOLE [Concomitant]
     Active Substance: PRAMIPEXOLE
     Dosage: 180 MILLIGRAM
     Route: 065
  7. PRAMIPEXOLE [Concomitant]
     Active Substance: PRAMIPEXOLE
     Dosage: UNK
     Route: 065
  8. PRAMIPEXOLE [Concomitant]
     Active Substance: PRAMIPEXOLE
     Dosage: 180 MILLIGRAM
     Route: 065
  9. CLADRIBINE [Concomitant]
     Active Substance: CLADRIBINE
     Dosage: 10 MILLIGRAM
     Route: 065
  10. Microlax [Concomitant]
     Dosage: 1 MILLIGRAM
     Route: 054
  11. DULCOLAX NOS [Concomitant]
     Active Substance: BISACODYL OR DOCUSATE SODIUM
     Dosage: 5 MILLIGRAM
     Route: 065
  12. LIORESAL [Concomitant]
     Active Substance: BACLOFEN
     Dosage: 1.5 MILLIGRAM
     Route: 065
  13. LIORESAL [Concomitant]
     Active Substance: BACLOFEN
     Dosage: 1.5 MILLIGRAM
     Route: 065
  14. CLONFOLIC [Concomitant]
     Dosage: 400 MILLIGRAM
     Route: 065
  15. CLONFOLIC [Concomitant]
     Dosage: 400 MILLIGRAM
     Route: 065
  16. CLONFOLIC [Concomitant]
     Dosage: 400 MILLIGRAM
     Route: 065
  17. MAVENCLAD [Concomitant]
     Active Substance: CLADRIBINE
     Dosage: UNK
     Route: 065
     Dates: start: 20201028
  18. MAVENCLAD [Concomitant]
     Active Substance: CLADRIBINE
     Dosage: UNK (WEEK 1)
     Route: 065
     Dates: start: 20190930
  19. MAVENCLAD [Concomitant]
     Active Substance: CLADRIBINE
     Dosage: UNK (WEEK 5)
     Route: 065
     Dates: start: 20191028
  20. MAVENCLAD [Concomitant]
     Active Substance: CLADRIBINE
     Dosage: UNK
     Route: 065
     Dates: start: 20191028
  21. MAVENCLAD [Concomitant]
     Active Substance: CLADRIBINE
     Dosage: UNK
     Route: 065
     Dates: start: 20190930
  22. MAVENCLAD [Concomitant]
     Active Substance: CLADRIBINE
     Dosage: UNK
     Route: 065
     Dates: start: 20190930
  23. COTRIMOXAZOLE [Concomitant]
     Active Substance: SULFAMETHOXAZOLE\TRIMETHOPRIM
     Dosage: 80 MILLIGRAM
     Route: 065
  24. Alton [Concomitant]
     Dosage: 30 MILLIGRAM
     Route: 065
  25. Alton [Concomitant]
     Dosage: 30 MILLIGRAM
     Route: 065
  26. TOVIAZ [Concomitant]
     Active Substance: FESOTERODINE FUMARATE
     Dosage: 8 MILLIGRAM
     Route: 065
  27. TOVIAZ [Concomitant]
     Active Substance: FESOTERODINE FUMARATE
     Dosage: 8 MILLIGRAM
     Route: 065
  28. DULOXETINE KRKA [Concomitant]
     Dosage: 60 MILLIGRAM
     Route: 065
  29. CHOLECALCIFEROL [Concomitant]
     Active Substance: CHOLECALCIFEROL
     Dosage: 800 MILLIGRAM
     Route: 065
  30. CHOLECALCIFEROL [Concomitant]
     Active Substance: CHOLECALCIFEROL
     Dosage: 800 MILLIGRAM
     Route: 065
  31. MIRABEGRON [Concomitant]
     Active Substance: MIRABEGRON
     Dosage: 500 MILLIGRAM
     Route: 065
  32. MIRABEGRON [Concomitant]
     Active Substance: MIRABEGRON
     Dosage: 500 MILLIGRAM
     Route: 065
  33. MIRABEGRON [Concomitant]
     Active Substance: MIRABEGRON
     Dosage: 500 MILLIGRAM
     Route: 065

REACTIONS (15)
  - Pain [Not Recovered/Not Resolved]
  - Arthralgia [Not Recovered/Not Resolved]
  - Mobility decreased [Not Recovered/Not Resolved]
  - Drug delivery device placement [Not Recovered/Not Resolved]
  - Muscle spasms [Not Recovered/Not Resolved]
  - Back pain [Not Recovered/Not Resolved]
  - Pain in extremity [Not Recovered/Not Resolved]
  - Bladder catheterisation [Not Recovered/Not Resolved]
  - Device dislocation [Recovered/Resolved]
  - Urinary retention [Not Recovered/Not Resolved]
  - Drug ineffective [Unknown]
  - Burning sensation [Recovering/Resolving]
  - Urinary tract infection [Recovered/Resolved]
  - Condition aggravated [Not Recovered/Not Resolved]
  - Muscular weakness [Recovering/Resolving]

NARRATIVE: CASE EVENT DATE: 20210101
